FAERS Safety Report 8956444 (Version 2)
Quarter: 2012Q4

REPORT INFORMATION
  Report Type: Report from Study
  Country: US (occurrence: US)
  Receive Date: 20121210
  Receipt Date: 20121228
  Transmission Date: 20130627
  Serious: Yes (Hospitalization)
  Sender: FDA-Public Use
  Company Number: US-EISAI INC-E7389-03344-CLI-US

PATIENT
  Age: 48 Year
  Sex: Female
  Weight: 52 kg

DRUGS (7)
  1. E7389 (BOLD) [Suspect]
     Indication: BREAST CANCER
     Route: 065
     Dates: start: 20120830
  2. RAMUCIRUMAB [Suspect]
     Indication: BREAST CANCER
     Route: 042
     Dates: start: 20120830
  3. OXYCODONE [Concomitant]
     Route: 065
     Dates: start: 2011
  4. BUPROPION [Concomitant]
     Route: 065
     Dates: start: 2009
  5. ZOLOFT [Concomitant]
     Route: 065
     Dates: start: 2010
  6. XANAX [Concomitant]
     Route: 065
     Dates: start: 2009
  7. SIMVASTATIN [Concomitant]
     Route: 065

REACTIONS (1)
  - Pancreatitis [Recovered/Resolved]
